FAERS Safety Report 17042109 (Version 1)
Quarter: 2019Q4

REPORT INFORMATION
  Report Type: Spontaneous
  Country: GB (occurrence: GB)
  Receive Date: 20191118
  Receipt Date: 20191118
  Transmission Date: 20200122
  Serious: Yes (Other)
  Sender: FDA-Public Use
  Company Number: GB-SUN PHARMACEUTICAL INDUSTRIES LTD-2019RR-227954

PATIENT
  Age: 18 Year
  Sex: Male
  Weight: 71.5 kg

DRUGS (2)
  1. ISOTRETINOIN. [Suspect]
     Active Substance: ISOTRETINOIN
     Indication: ACNE
     Dosage: 70MG X 1 MONTH ()
     Route: 048
     Dates: start: 20171002, end: 20171215
  2. ISOTRETINOIN. [Suspect]
     Active Substance: ISOTRETINOIN
     Indication: ACNE
     Dosage: 35 MG X 1 MONTH
     Route: 048
     Dates: start: 20171002, end: 20171215

REACTIONS (1)
  - Organic erectile dysfunction [Recovering/Resolving]
